FAERS Safety Report 20660494 (Version 1)
Quarter: 2022Q1

REPORT INFORMATION
  Report Type: Spontaneous
  Country: IT (occurrence: IT)
  Receive Date: 20220331
  Receipt Date: 20220331
  Transmission Date: 20220423
  Serious: Yes (Hospitalization)
  Sender: FDA-Public Use
  Company Number: None

PATIENT
  Age: 46 Year
  Sex: Female
  Weight: 51 kg

DRUGS (2)
  1. STIVARGA [Suspect]
     Active Substance: REGORAFENIB
     Indication: Adenocarcinoma of colon
     Dosage: 160 MG, QD
     Dates: start: 20220128, end: 20220207
  2. LANSOPRAZOLE [Concomitant]
     Active Substance: LANSOPRAZOLE
     Dosage: 30 MG
     Route: 048

REACTIONS (4)
  - Pyrexia [Recovering/Resolving]
  - Dermatitis exfoliative [Recovering/Resolving]
  - C-reactive protein increased [Recovering/Resolving]
  - Procalcitonin increased [Recovering/Resolving]

NARRATIVE: CASE EVENT DATE: 20220202
